FAERS Safety Report 4693304-9 (Version None)
Quarter: 2005Q2

REPORT INFORMATION
  Report Type: 
  Country: None (occurrence: None)
  Receive Date: 20050617
  Receipt Date: 20050615
  Transmission Date: 20051028
  Serious: Yes (Hospitalization)
  Sender: FDA-Public Use
  Company Number: NL-GLAXOSMITHKLINE-B0384757A

PATIENT
  Age: 42 Year
  Sex: Male

DRUGS (2)
  1. AMOXICILLIN TRIHYDRATE [Suspect]
     Dosage: 500MG THREE TIMES PER DAY
     Route: 065
     Dates: start: 20030729, end: 20030823
  2. MEBENDAZOLE [Suspect]
     Indication: PRURITUS ANI
     Dosage: 100MG TWICE PER DAY
     Route: 065
     Dates: start: 20030809, end: 20030823

REACTIONS (8)
  - ANGIONEUROTIC OEDEMA [None]
  - BLISTER [None]
  - DRUG HYPERSENSITIVITY [None]
  - ERYTHEMA MULTIFORME [None]
  - MALAISE [None]
  - PHARYNGOLARYNGEAL PAIN [None]
  - PRURITUS [None]
  - PYREXIA [None]
